FAERS Safety Report 7153308-3 (Version None)
Quarter: 2010Q4

REPORT INFORMATION
  Report Type: 
  Country: None (occurrence: None)
  Receive Date: 20101130
  Receipt Date: 20101116
  Transmission Date: 20110411
  Serious: Yes (Other)
  Sender: FDA-Public Use
  Company Number: 2010AT000089

PATIENT
  Age: 39 Year
  Sex: Male
  Weight: 99 kg

DRUGS (6)
  1. THEO-24 (200 MG) [Suspect]
     Indication: ASTHMA
     Dosage: 200 MG;QD;PO
     Route: 048
  2. ALBUTEROL [Concomitant]
  3. ADVAIR [Concomitant]
  4. CELEBREX [Concomitant]
  5. DUONEB [Concomitant]
  6. PREV MEDS [Concomitant]

REACTIONS (1)
  - HEPATITIS C [None]
